FAERS Safety Report 8922869 (Version 2)
Quarter: 2012Q4

REPORT INFORMATION
  Report Type: 
  Country: BR (occurrence: BR)
  Receive Date: 20121123
  Receipt Date: 20121217
  Transmission Date: 20130627
  Serious: Yes (Other)
  Sender: FDA-Public Use
  Company Number: PHHY2012BR105579

PATIENT
  Age: 52 Year
  Sex: Male

DRUGS (2)
  1. TEGRETOL CR [Suspect]
     Indication: EPILEPSY
     Dosage: 2 DF, BID (2 tablets in the morning and 2 tablets at night)
     Route: 048
  2. GARDENAL//PHENOBARBITAL [Concomitant]
     Indication: EPILEPSY
     Dosage: 2 DF, UNK
     Route: 048

REACTIONS (2)
  - Epilepsy [Not Recovered/Not Resolved]
  - Depression [Not Recovered/Not Resolved]
